FAERS Safety Report 5630685-3 (Version None)
Quarter: 2008Q1

REPORT INFORMATION
  Report Type: 
  Country: None (occurrence: None)
  Receive Date: 20080219
  Receipt Date: 20080206
  Transmission Date: 20080703
  Serious: Yes (Hospitalization)
  Sender: FDA-Public Use
  Company Number: US-MERCK-0802USA03532

PATIENT
  Age: 36 Year
  Sex: Female

DRUGS (5)
  1. ZOCOR [Suspect]
     Route: 048
  2. LEVOTHYROXINE SODIUM [Suspect]
     Route: 065
  3. PROPULSID [Suspect]
     Route: 065
  4. METHYLPHENIDATE [Suspect]
     Route: 065
  5. ESTRADIOL [Suspect]
     Route: 065

REACTIONS (5)
  - ACUTE RESPIRATORY DISTRESS SYNDROME [None]
  - EXCORIATION [None]
  - MULTIPLE DRUG OVERDOSE [None]
  - PYREXIA [None]
  - SUICIDE ATTEMPT [None]
